FAERS Safety Report 4531990-4 (Version None)
Quarter: 2004Q4

REPORT INFORMATION
  Report Type: 
  Country: None (occurrence: None)
  Receive Date: 20041217
  Receipt Date: 20041209
  Transmission Date: 20050328
  Serious: Yes (Life-Threatening, Hospitalization)
  Sender: FDA-Public Use
  Company Number: HQWYE181716JUL04

PATIENT
  Age: 58 Year
  Sex: Female

DRUGS (14)
  1. RAPAMUNE [Suspect]
     Indication: PROPHYLAXIS AGAINST TRANSPLANT REJECTION
     Dosage: 2 MG 1X PER 1 DAY; ORAL
     Route: 048
     Dates: start: 20040705, end: 20040716
  2. RAPAMUNE [Suspect]
     Dosage: 3 MG 1X PER 1 DAY; ORAL
     Route: 048
     Dates: start: 20040717, end: 20040806
  3. RAPAMUNE [Suspect]
     Dosage: 2 MG 1X PER 1 DAY; ORAL
     Route: 048
     Dates: start: 20040807, end: 20040923
  4. RAPAMUNE [Suspect]
     Dosage: 2 MG 1X PER 1 DAY; ORAL
     Route: 048
     Dates: start: 20040926, end: 20040928
  5. OMEPRAZOLE [Concomitant]
  6. ATENOLOL [Concomitant]
  7. AMLODIPINE [Concomitant]
  8. PREDNISONE [Concomitant]
  9. PREDNISONE [Concomitant]
  10. FUROSEMIDE [Concomitant]
  11. CYCLOSPORINE [Concomitant]
  12. CYCLOSPORINE [Concomitant]
  13. CYCLOSPORINE [Concomitant]
  14. CYCLOSPORINE [Concomitant]

REACTIONS (10)
  - CANDIDIASIS [None]
  - CLOSTRIDIUM COLITIS [None]
  - ENTEROBACTER BACTERAEMIA [None]
  - GENITAL CANDIDIASIS [None]
  - HYPERKALAEMIA [None]
  - KLEBSIELLA INFECTION [None]
  - LYMPHOCELE [None]
  - MALNUTRITION [None]
  - URINARY TRACT OBSTRUCTION [None]
  - WOUND INFECTION [None]
